FAERS Safety Report 5247686-X (Version None)
Quarter: 2007Q1

REPORT INFORMATION
  Report Type: 
  Country: None (occurrence: None)
  Receive Date: 20070227
  Receipt Date: 20070216
  Transmission Date: 20070707
  Serious: Yes (Other)
  Sender: FDA-Public Use
  Company Number: US-ELI_LILLY_AND_COMPANY-US200702003549

PATIENT
  Age: 47 Year
  Sex: Female

DRUGS (3)
  1. HUMALOG [Suspect]
     Indication: DIABETES MELLITUS
     Dosage: UNK, AS NEEDED
  2. LANTUS [Concomitant]
     Indication: DIABETES MELLITUS
     Dosage: 4-5 UNITS IN AM
  3. LANTUS [Concomitant]
     Dosage: 12-14 U, EACH EVENING

REACTIONS (4)
  - BLOOD GLUCOSE INCREASED [None]
  - DRUG INEFFECTIVE [None]
  - HEART RATE INCREASED [None]
  - IMPAIRED GASTRIC EMPTYING [None]
